FAERS Safety Report 6492352-6 (Version None)
Quarter: 2009Q4

REPORT INFORMATION
  Report Type: 
  Country: None (occurrence: None)
  Receive Date: 20091214
  Receipt Date: 20091207
  Transmission Date: 20100525
  Serious: Yes (Hospitalization)
  Sender: FDA-Public Use
  Company Number: JP-BAYER-200812007BYL

PATIENT
  Age: 51 Year
  Sex: Male
  Weight: 90 kg

DRUGS (5)
  1. NEXAVAR [Suspect]
     Indication: RENAL CELL CARCINOMA
     Dosage: UNIT DOSE: 200 MG
     Route: 048
     Dates: start: 20080509, end: 20080826
  2. NEXAVAR [Suspect]
     Dosage: UNIT DOSE: 200 MG
     Route: 048
     Dates: start: 20081024, end: 20090203
  3. BLOPRESS [Concomitant]
     Route: 048
     Dates: start: 20070706, end: 20080921
  4. GLYCORAN [Concomitant]
     Route: 048
     Dates: start: 20080901, end: 20090409
  5. NIVADIL [Concomitant]
     Route: 048
     Dates: start: 20080718, end: 20080826

REACTIONS (2)
  - PALMAR-PLANTAR ERYTHRODYSAESTHESIA SYNDROME [None]
  - PLEURAL EFFUSION [None]
